FAERS Safety Report 4883771-X (Version None)
Quarter: 2006Q1

REPORT INFORMATION
  Report Type: 
  Country: None (occurrence: None)
  Receive Date: 20060113
  Receipt Date: 20051227
  Transmission Date: 20060701
  Serious: Yes (Hospitalization)
  Sender: FDA-Public Use
  Company Number: US200512004306

PATIENT
  Sex: Female

DRUGS (3)
  1. FORTEO [Suspect]
     Indication: OSTEOPOROSIS
     Dates: start: 20050801, end: 20051101
  2. FORTEO [Suspect]
     Indication: OSTEOPOROSIS
     Dates: start: 20051101, end: 20051201
  3. FORTEO [Concomitant]

REACTIONS (6)
  - ABDOMINAL PAIN UPPER [None]
  - GALLBLADDER DISORDER [None]
  - GASTRIC ULCER [None]
  - MALAISE [None]
  - PAIN [None]
  - PHARMACEUTICAL PRODUCT COMPLAINT [None]
